FAERS Safety Report 6209161-5 (Version None)
Quarter: 2009Q2

REPORT INFORMATION
  Report Type: 
  Country: None (occurrence: None)
  Receive Date: 20090529
  Receipt Date: 20090526
  Transmission Date: 20091009
  Serious: No
  Sender: FDA-Public Use
  Company Number: US-B.I. PHARMACEUTICALS,INC./RIDGEFIELD-2009-BP-06512BP

PATIENT
  Age: 87 Year
  Sex: Male

DRUGS (7)
  1. FLOMAX [Suspect]
     Indication: BENIGN PROSTATIC HYPERPLASIA
     Dosage: .4MG
     Route: 048
     Dates: start: 20040101
  2. PLAVIX [Concomitant]
     Indication: CEREBROVASCULAR ACCIDENT
  3. PLAVIX [Concomitant]
     Indication: MYOCARDIAL INFARCTION
  4. LIPITOR [Concomitant]
     Indication: BLOOD CHOLESTEROL INCREASED
  5. LOTREL [Concomitant]
  6. ALLOPURINOL [Concomitant]
     Indication: GOUT
  7. COLCHICINE [Concomitant]
     Indication: GOUT

REACTIONS (3)
  - DIZZINESS [None]
  - RHINORRHOEA [None]
  - SEMEN VOLUME DECREASED [None]
